FAERS Safety Report 17384193 (Version 1)
Quarter: 2020Q1

REPORT INFORMATION
  Report Type: Spontaneous
  Country: US (occurrence: US)
  Receive Date: 20200206
  Receipt Date: 20200206
  Transmission Date: 20200409
  Serious: No
  Sender: FDA-Public Use
  Company Number: US-ABBVIE-19K-163-2873530-00

PATIENT
  Age: 59 Year
  Sex: Female
  Weight: 111.23 kg

DRUGS (2)
  1. HUMIRA [Suspect]
     Active Substance: ADALIMUMAB
     Indication: RHEUMATOID ARTHRITIS
     Route: 058
     Dates: start: 20190429, end: 20190610
  2. HUMIRA [Suspect]
     Active Substance: ADALIMUMAB
     Route: 058
     Dates: start: 20190610

REACTIONS (9)
  - Injection site haemorrhage [Not Recovered/Not Resolved]
  - Needle issue [Recovered/Resolved]
  - Therapeutic response shortened [Recovered/Resolved]
  - Injection site pruritus [Recovered/Resolved]
  - Injection site urticaria [Recovering/Resolving]
  - Incorrect dose administered [Recovered/Resolved]
  - Insomnia [Recovered/Resolved]
  - Arthralgia [Recovering/Resolving]
  - Injection site erythema [Recovering/Resolving]

NARRATIVE: CASE EVENT DATE: 20190429
